FAERS Safety Report 25035909 (Version 1)
Quarter: 2025Q1

REPORT INFORMATION
  Report Type: Spontaneous
  Country: US (occurrence: US)
  Receive Date: 20250304
  Receipt Date: 20250304
  Transmission Date: 20250408
  Serious: No
  Sender: INVENTIA HEALTHCARE PRIVATE LIMITED
  Company Number: US-Inventia-000721

PATIENT
  Sex: Female

DRUGS (1)
  1. METFORMIN HYDROCHLORIDE [Suspect]
     Active Substance: METFORMIN HYDROCHLORIDE
     Indication: Product used for unknown indication

REACTIONS (3)
  - Adverse event [Unknown]
  - Product label issue [Unknown]
  - Product substitution issue [Unknown]
